FAERS Safety Report 20785240 (Version 1)
Quarter: 2022Q2

REPORT INFORMATION
  Report Type: Spontaneous
  Country: US (occurrence: None)
  Receive Date: 20220504
  Receipt Date: 20220504
  Transmission Date: 20220720
  Serious: Yes (Hospitalization, Disabling)
  Sender: FDA-Public Use
  Company Number: None

PATIENT
  Age: 58 Year
  Sex: Male
  Weight: 121.5 kg

DRUGS (12)
  1. .DELTA.8-TETRAHYDROCANNABINOL\HERBALS [Suspect]
     Active Substance: .DELTA.8-TETRAHYDROCANNABINOL\HERBALS
     Indication: Pain
     Dosage: OTHER QUANTITY : 1 PIECE;?OTHER FREQUENCY : UNKNOWN;?
     Route: 048
     Dates: start: 20211001, end: 20220428
  2. DEVICE\HERBALS [Suspect]
     Active Substance: DEVICE\HERBALS
     Indication: Pain
     Dosage: QUANTITY: 1 PIECE
     Route: 048
     Dates: start: 20211001, end: 20220428
  3. TRAZODONE [Concomitant]
  4. ACETAMINOPHEN\HYDROCODONE [Concomitant]
     Active Substance: ACETAMINOPHEN\HYDROCODONE
  5. VICTOZA [Concomitant]
     Active Substance: LIRAGLUTIDE
  6. PIOGLITAZONE [Concomitant]
     Active Substance: PIOGLITAZONE
  7. METFORMIN [Concomitant]
     Active Substance: METFORMIN HYDROCHLORIDE
  8. ADDERALL [Concomitant]
     Active Substance: AMPHETAMINE ASPARTATE\AMPHETAMINE SULFATE\DEXTROAMPHETAMINE SACCHARATE\DEXTROAMPHETAMINE SULFATE
  9. NAPROXEN [Concomitant]
     Active Substance: NAPROXEN
  10. ESCITALOPRAM [Concomitant]
     Active Substance: ESCITALOPRAM OXALATE
  11. FOLIC ACID [Concomitant]
     Active Substance: FOLIC ACID
  12. INDOMETHACIN [Concomitant]
     Active Substance: INDOMETHACIN

REACTIONS (6)
  - Extra dose administered [None]
  - Mania [None]
  - Drug screen positive [None]
  - Intermittent explosive disorder [None]
  - Agitation [None]
  - Homicidal ideation [None]

NARRATIVE: CASE EVENT DATE: 20220422
